FAERS Safety Report 17746048 (Version 1)
Quarter: 2020Q2

REPORT INFORMATION
  Report Type: Spontaneous
  Country: CA (occurrence: CA)
  Receive Date: 20200505
  Receipt Date: 20200505
  Transmission Date: 20200714
  Serious: Yes (Other)
  Sender: FDA-Public Use
  Company Number: CA-PFIZER INC-2020178262

PATIENT

DRUGS (3)
  1. NICOTINE. [Suspect]
     Active Substance: NICOTINE
     Dosage: UNK
     Route: 065
  2. CHAMPIX [Suspect]
     Active Substance: VARENICLINE TARTRATE
     Dosage: 1 MG, 2X/DAY
     Route: 065
  3. NICODERM CQ [Suspect]
     Active Substance: NICOTINE
     Indication: SMOKING CESSATION THERAPY
     Dosage: UNK
     Route: 065

REACTIONS (41)
  - Arthralgia [Unknown]
  - Disturbance in attention [Unknown]
  - Dizziness [Unknown]
  - Dyspnoea [Unknown]
  - Palpitations [Unknown]
  - Anger [Unknown]
  - Paraesthesia [Unknown]
  - Restlessness [Unknown]
  - Sinus congestion [Unknown]
  - Drug ineffective [Unknown]
  - Dry skin [Unknown]
  - Dysgeusia [Unknown]
  - Lethargy [Unknown]
  - Withdrawal syndrome [Unknown]
  - Constipation [Unknown]
  - Diarrhoea [Unknown]
  - Hot flush [Unknown]
  - Libido decreased [Unknown]
  - Nausea [Unknown]
  - Pruritus [Unknown]
  - Chest pain [Unknown]
  - Depression [Unknown]
  - Ex-tobacco user [Unknown]
  - Pain in jaw [Unknown]
  - Rash [Unknown]
  - Sleep disorder [Unknown]
  - Somnolence [Unknown]
  - Tachycardia [Unknown]
  - Anxiety [Unknown]
  - Dyspepsia [Unknown]
  - Insomnia [Unknown]
  - Vision blurred [Unknown]
  - Abnormal dreams [Unknown]
  - Cough [Unknown]
  - Erythema [Unknown]
  - Flatulence [Unknown]
  - Hypertonia [Unknown]
  - Suicidal ideation [Unknown]
  - Emotional distress [Unknown]
  - Increased appetite [Unknown]
  - Neck pain [Unknown]
